FAERS Safety Report 21854618 (Version 2)
Quarter: 2023Q1

REPORT INFORMATION
  Report Type: Spontaneous
  Country: US (occurrence: US)
  Receive Date: 20230112
  Receipt Date: 20230228
  Transmission Date: 20230418
  Serious: Yes (Other)
  Sender: FDA-Public Use
  Company Number: US-Hikma Pharmaceuticals USA Inc.-US-H14001-22-03323

PATIENT
  Age: 4 Month
  Sex: Male

DRUGS (13)
  1. BOSENTAN [Suspect]
     Active Substance: BOSENTAN
     Indication: Pulmonary arterial hypertension
     Dosage: UNKNOWN
     Route: 065
  2. SILDENAFIL [Suspect]
     Active Substance: SILDENAFIL
     Indication: Pulmonary arterial hypertension
     Dosage: UNKNOWN
     Route: 065
  3. TREPROSTINIL [Suspect]
     Active Substance: TREPROSTINIL
     Indication: Pulmonary arterial hypertension
     Dosage: UNKNOWN
     Route: 042
  4. TREPROSTINIL [Suspect]
     Active Substance: TREPROSTINIL
     Dosage: 65 NG/KG/MIN
     Route: 042
  5. TREPROSTINIL [Suspect]
     Active Substance: TREPROSTINIL
     Dosage: UNKNOWN
     Route: 058
  6. NITRIC OXIDE [Suspect]
     Active Substance: NITRIC OXIDE
     Indication: Pulmonary arterial hypertension
     Dosage: UNKNOWN
     Route: 065
  7. UNSPECIFIED INGREDIENT [Suspect]
     Active Substance: UNSPECIFIED INGREDIENT
     Indication: Pulmonary arterial hypertension
     Dosage: UNKNOWN
     Route: 042
  8. RIOCIGUAT [Suspect]
     Active Substance: RIOCIGUAT
     Indication: Pulmonary arterial hypertension
     Dosage: 0.05 MG (0.01 MG/KG/DOSE)
     Route: 065
  9. RIOCIGUAT [Suspect]
     Active Substance: RIOCIGUAT
     Dosage: 0.1 MG/DOSE
     Route: 065
  10. RIOCIGUAT [Suspect]
     Active Substance: RIOCIGUAT
     Dosage: 0.5 MG/DOSE
     Route: 065
  11. RIOCIGUAT [Suspect]
     Active Substance: RIOCIGUAT
     Dosage: 2 MG/DOSE
     Route: 065
  12. OXYGEN [Suspect]
     Active Substance: OXYGEN
     Indication: Pulmonary arterial hypertension
     Dosage: UNKNOWN
     Route: 065
  13. OXYGEN [Suspect]
     Active Substance: OXYGEN
     Indication: Oxygen therapy

REACTIONS (1)
  - Drug ineffective [Recovering/Resolving]
